FAERS Safety Report 10225688 (Version 2)
Quarter: 2014Q2

REPORT INFORMATION
  Report Type: Spontaneous
  Country: US (occurrence: US)
  Receive Date: 20140609
  Receipt Date: 20140609
  Transmission Date: 20141212
  Serious: No
  Sender: FDA-Public Use
  Company Number: US-ASTELLAS-2013US008591

PATIENT
  Age: 16 Year
  Sex: Male

DRUGS (1)
  1. PROGRAF [Suspect]
     Indication: NEPHROTIC SYNDROME
     Route: 065
     Dates: start: 2012

REACTIONS (1)
  - Off label use [Unknown]
